FAERS Safety Report 18481051 (Version 1)
Quarter: 2020Q4

REPORT INFORMATION
  Report Type: Spontaneous
  Country: PT (occurrence: PT)
  Receive Date: 20201109
  Receipt Date: 20201109
  Transmission Date: 20210114
  Serious: Yes (Life-Threatening, Hospitalization, Other)
  Sender: FDA-Public Use
  Company Number: NVSC2020PT299027

PATIENT
  Age: 66 Year
  Sex: Female

DRUGS (1)
  1. CIPROFLOXACIN. [Suspect]
     Active Substance: CIPROFLOXACIN
     Indication: GASTROENTERITIS
     Dosage: UNK
     Route: 065

REACTIONS (6)
  - Peripheral swelling [Recovered/Resolved]
  - Purpura fulminans [Recovered/Resolved]
  - Haematoma [Recovered/Resolved]
  - Antiphospholipid syndrome [Recovered/Resolved]
  - Urine flow decreased [Recovered/Resolved]
  - Pain [Recovered/Resolved]
